FAERS Safety Report 23409724 (Version 1)
Quarter: 2024Q1

REPORT INFORMATION
  Report Type: Spontaneous
  Country: US (occurrence: None)
  Receive Date: 20240116
  Receipt Date: 20240116
  Transmission Date: 20240410
  Serious: Yes (Hospitalization)
  Sender: FDA-Public Use
  Company Number: None

PATIENT
  Age: 88 Year
  Sex: Male
  Weight: 88.4 kg

DRUGS (3)
  1. ERTAPENEM [Suspect]
     Active Substance: ERTAPENEM
     Indication: Antimicrobial susceptibility test resistant
     Dosage: FREQUENCY : DAILY;?
     Route: 042
     Dates: end: 20240112
  2. ERTAPENEM [Suspect]
     Active Substance: ERTAPENEM
     Indication: Klebsiella urinary tract infection
  3. MEROPENEM [Suspect]
     Active Substance: MEROPENEM

REACTIONS (1)
  - Mental status changes [None]

NARRATIVE: CASE EVENT DATE: 20240111
